FAERS Safety Report 10217728 (Version 1)
Quarter: 2014Q2

REPORT INFORMATION
  Report Type: Spontaneous
  Country: US (occurrence: US)
  Receive Date: 20140604
  Receipt Date: 20140604
  Transmission Date: 20141212
  Serious: Yes (Other)
  Sender: FDA-Public Use
  Company Number: US-RB-068191-14

PATIENT
  Sex: Female

DRUGS (3)
  1. SUBOXONE FILM [Suspect]
     Indication: DRUG DEPENDENCE
     Dosage: SUBOXONE FILM
     Route: 060
     Dates: start: 2013, end: 201310
  2. BUPRENORPHINE GENERIC [Suspect]
     Indication: DRUG DEPENDENCE
     Route: 060
     Dates: start: 201310
  3. PRENATAL VITAMIN [Concomitant]
     Indication: NUTRITIONAL SUPPLEMENTATION
     Dosage: TAKING 1 TABLET DAILY
     Route: 065
     Dates: start: 201310

REACTIONS (5)
  - Maternal exposure during pregnancy [Recovered/Resolved]
  - Preterm premature rupture of membranes [Recovered/Resolved]
  - Premature labour [Recovered/Resolved]
  - Premature delivery [Recovered/Resolved]
  - Mastitis [Unknown]
